FAERS Safety Report 8376763-X (Version None)
Quarter: 2012Q2

REPORT INFORMATION
  Report Type: 
  Country: None (occurrence: None)
  Receive Date: 20120522
  Receipt Date: 20120208
  Transmission Date: 20120825
  Serious: No
  Sender: FDA-Public Use
  Company Number: US-BRISTOL-MYERS SQUIBB COMPANY-16390734

PATIENT
  Age: 72 Year
  Sex: Female
  Weight: 49 kg

DRUGS (2)
  1. ONGLYZA [Suspect]
     Dates: start: 20111227
  2. METFORMIN HCL [Concomitant]

REACTIONS (3)
  - OEDEMA PERIPHERAL [None]
  - LOCALISED OEDEMA [None]
  - WEIGHT INCREASED [None]
